FAERS Safety Report 6529190-1 (Version None)
Quarter: 2010Q1

REPORT INFORMATION
  Report Type: 
  Country: None (occurrence: None)
  Receive Date: 20100107
  Receipt Date: 20091228
  Transmission Date: 20100710
  Serious: Yes (Hospitalization)
  Sender: FDA-Public Use
  Company Number: IT-JNJFOC-20091107184

PATIENT
  Sex: Female

DRUGS (6)
  1. SERENASE [Suspect]
     Indication: DRUG USE FOR UNKNOWN INDICATION
     Route: 065
     Dates: start: 20091018, end: 20091020
  2. CITALOPRAM HYDROBROMIDE [Suspect]
     Indication: DRUG USE FOR UNKNOWN INDICATION
     Route: 048
     Dates: start: 20091018, end: 20091020
  3. ALPRAZOLAM [Suspect]
     Indication: DRUG USE FOR UNKNOWN INDICATION
     Route: 048
     Dates: start: 20091018, end: 20091020
  4. DEXAMETHASONE [Concomitant]
     Route: 030
  5. LEVOTIROXINA [Concomitant]
     Indication: HYPOTHYROIDISM
     Route: 065
  6. LEVOTIROXINA [Concomitant]
     Route: 065

REACTIONS (6)
  - BLOOD GLUCOSE INCREASED [None]
  - DYSARTHRIA [None]
  - EXPRESSIVE LANGUAGE DISORDER [None]
  - FACIAL PALSY [None]
  - NEUROLEPTIC MALIGNANT SYNDROME [None]
  - SPEECH DISORDER [None]
